FAERS Safety Report 8876490 (Version 2)
Quarter: 2012Q4

REPORT INFORMATION
  Report Type: 
  Country: US (occurrence: US)
  Receive Date: 20121023
  Receipt Date: 20121127
  Transmission Date: 20130627
  Serious: Yes (Other)
  Sender: FDA-Public Use
  Company Number: US-FRI-1000039482

PATIENT
  Sex: Female

DRUGS (5)
  1. ESCITALOPRAM [Suspect]
     Indication: DEPRESSION
     Dosage: 20MG
  2. ESCITALOPRAM [Suspect]
     Indication: ANXIETY
  3. ASPIRIN [Concomitant]
     Indication: ANTICOAGULANT THERAPY
     Dosage: 325MG
  4. CLONAZEPAM [Concomitant]
     Indication: INSOMNIA
     Dosage: 1MG
  5. MECLOZINE [Concomitant]
     Indication: DIZZINESS
     Dosage: 25MG AS NEEDED

REACTIONS (2)
  - Bladder cancer [Recovering/Resolving]
  - Fall [Recovered/Resolved]
